FAERS Safety Report 8102642-9 (Version None)
Quarter: 2011Q4

REPORT INFORMATION
  Report Type: 
  Country: None (occurrence: None)
  Receive Date: 20111222
  Receipt Date: 20110907
  Transmission Date: 20120403
  Serious: Yes (Death, Hospitalization)
  Sender: FDA-Public Use
  Company Number: UTC-010036

PATIENT
  Age: 70 Year
  Sex: Female

DRUGS (6)
  1. DIURETICS (DIURETICS) [Concomitant]
  2. REVATIO [Concomitant]
  3. REMODULIN [Suspect]
     Indication: COR PULMONALE CHRONIC
     Dosage: SUBCUTANEOUS
     Route: 058
     Dates: start: 20110819, end: 20110822
  4. TRACLEER [Concomitant]
  5. TYVASO [Suspect]
     Indication: COR PULMONALE CHRONIC
     Dosage: 72 MCG (18 MCG,4 IN 1 D),INHALATION
     Route: 055
     Dates: start: 20110715
  6. COUMADIN [Concomitant]

REACTIONS (3)
  - OEDEMA [None]
  - DYSPNOEA [None]
  - CARDIO-RESPIRATORY ARREST [None]
